FAERS Safety Report 12211575 (Version 9)
Quarter: 2016Q4

REPORT INFORMATION
  Report Type: Report from Study
  Country: US (occurrence: US)
  Receive Date: 20160325
  Receipt Date: 20161122
  Transmission Date: 20170207
  Serious: Yes (Hospitalization, Other)
  Sender: FDA-Public Use
  Company Number: US-B.I. PHARMACEUTICALS,INC./RIDGEFIELD-2016-BI-18299BP

PATIENT
  Age: 73 Year
  Sex: Male
  Weight: 61.23 kg

DRUGS (1)
  1. OFEV [Suspect]
     Active Substance: NINTEDANIB
     Indication: IDIOPATHIC PULMONARY FIBROSIS
     Route: 048
     Dates: start: 20160303

REACTIONS (16)
  - Abdominal pain upper [Unknown]
  - Fatigue [Unknown]
  - Pain [Unknown]
  - Urinary tract infection [Unknown]
  - Prostate infection [Unknown]
  - Cough [Unknown]
  - Sepsis [Unknown]
  - Sepsis [Recovered/Resolved]
  - Dehydration [Unknown]
  - Gallbladder disorder [Unknown]
  - Nausea [Unknown]
  - Pneumonia [Unknown]
  - Decreased appetite [Unknown]
  - Cholecystitis acute [Recovered/Resolved]
  - Parosmia [Unknown]
  - Diarrhoea [Unknown]

NARRATIVE: CASE EVENT DATE: 20160324
